FAERS Safety Report 12162945 (Version 1)
Quarter: 2016Q1

REPORT INFORMATION
  Report Type: Spontaneous
  Country: KR (occurrence: KR)
  Receive Date: 20160309
  Receipt Date: 20160309
  Transmission Date: 20160526
  Serious: Yes (Other)
  Sender: FDA-Public Use
  Company Number: KR-ELI_LILLY_AND_COMPANY-KR201602010114

PATIENT
  Age: 61 Year
  Sex: Female

DRUGS (3)
  1. FORSTEO [Suspect]
     Active Substance: TERIPARATIDE
     Indication: BLOOD CALCIUM DECREASED
  2. FORSTEO [Suspect]
     Active Substance: TERIPARATIDE
     Indication: THYROIDECTOMY
     Dosage: UNK UNK, BID
     Route: 065
     Dates: start: 201210, end: 201510
  3. FORSTEO [Suspect]
     Active Substance: TERIPARATIDE
     Indication: PARATHYROIDECTOMY

REACTIONS (13)
  - Lacrimal gland enlargement [Unknown]
  - Tooth disorder [Unknown]
  - Pain [Unknown]
  - Off label use [Unknown]
  - Dizziness [Unknown]
  - Nausea [Unknown]
  - Noninfective gingivitis [Unknown]
  - Incorrect drug administration duration [Unknown]
  - Drug prescribing error [Unknown]
  - Osteomyelitis [Unknown]
  - Feeding disorder [Unknown]
  - Cataract [Unknown]
  - Gingival discolouration [Unknown]

NARRATIVE: CASE EVENT DATE: 201210
